FAERS Safety Report 7742770-0 (Version None)
Quarter: 2011Q3

REPORT INFORMATION
  Report Type: 
  Country: None (occurrence: None)
  Receive Date: 20110912
  Receipt Date: 20110831
  Transmission Date: 20111222
  Serious: Yes (Other)
  Sender: FDA-Public Use
  Company Number: US-JNJFOC-20110705642

PATIENT
  Sex: Female
  Weight: 72.58 kg

DRUGS (3)
  1. INVEGA SUSTENNA [Suspect]
     Indication: SCHIZOPHRENIA
     Route: 030
     Dates: start: 20110801
  2. INVEGA SUSTENNA [Suspect]
     Route: 030
     Dates: start: 20100801
  3. RISPERDAL CONSTA [Suspect]
     Indication: SCHIZOPHRENIA
     Route: 030
     Dates: start: 20040101, end: 20100801

REACTIONS (3)
  - HEART RATE IRREGULAR [None]
  - INJECTION SITE MASS [None]
  - INJECTION SITE PAIN [None]
